FAERS Safety Report 21601147 (Version 2)
Quarter: 2023Q1

REPORT INFORMATION
  Report Type: Report from Study
  Country: CA (occurrence: CA)
  Receive Date: 20221116
  Receipt Date: 20230103
  Transmission Date: 20230418
  Serious: Yes (Death, Other)
  Sender: FDA-Public Use
  Company Number: CA-JNJFOC-20221125039

PATIENT
  Age: 75 Year
  Sex: Male

DRUGS (1)
  1. SIMPONI [Suspect]
     Active Substance: GOLIMUMAB
     Indication: Colitis ulcerative
     Route: 058
     Dates: start: 20180312, end: 20221228

REACTIONS (2)
  - Metastatic mesothelioma [Fatal]
  - Epithelioid mesothelioma [Not Recovered/Not Resolved]

NARRATIVE: CASE EVENT DATE: 20221103
